FAERS Safety Report 7160695-9 (Version None)
Quarter: 2010Q4

REPORT INFORMATION
  Report Type: 
  Country: None (occurrence: None)
  Receive Date: 20101214
  Receipt Date: 20091211
  Transmission Date: 20110411
  Serious: No
  Sender: FDA-Public Use
  Company Number: US-AMGEN-KDL379994

PATIENT

DRUGS (2)
  1. ENBREL [Suspect]
     Indication: PSORIATIC ARTHROPATHY
     Dosage: 50 MG, QWK
     Route: 058
     Dates: start: 20040331
  2. METHOTREXATE [Concomitant]
     Dosage: 30 MG, QWK

REACTIONS (3)
  - COUGH [None]
  - INJECTION SITE PAIN [None]
  - NASAL CONGESTION [None]
